FAERS Safety Report 8941219 (Version 1)
Quarter: 2012Q4

REPORT INFORMATION
  Report Type: 
  Country: US (occurrence: US)
  Receive Date: 20121203
  Receipt Date: 20121203
  Transmission Date: 20130627
  Serious: Yes (Hospitalization, Other)
  Sender: FDA-Public Use
  Company Number: US-BAYER-2012-123889

PATIENT
  Sex: Female

DRUGS (1)
  1. MIRENA [Suspect]
     Indication: BIRTH CONTROL
     Dosage: 20 mcg/24hr, CONT
     Route: 015

REACTIONS (6)
  - Cerebrovascular accident [None]
  - Device dislocation [None]
  - Headache [None]
  - Pain [None]
  - Discomfort [None]
  - Activities of daily living impaired [None]
